FAERS Safety Report 16939974 (Version 1)
Quarter: 2019Q4

REPORT INFORMATION
  Report Type: Spontaneous
  Country: US (occurrence: US)
  Receive Date: 20191018
  Receipt Date: 20191018
  Transmission Date: 20200122
  Serious: Yes (Other)
  Sender: FDA-Public Use
  Company Number: None

PATIENT
  Age: 64 Year
  Sex: Male
  Weight: 68.9 kg

DRUGS (2)
  1. ARIKAYCE [Suspect]
     Active Substance: AMIKACIN
     Dates: start: 20190925, end: 20191004
  2. ARIKAYCE [Suspect]
     Active Substance: AMIKACIN

REACTIONS (2)
  - Bronchospasm [None]
  - Pulmonary function test decreased [None]
